FAERS Safety Report 5253786-0 (Version None)
Quarter: 2007Q1

REPORT INFORMATION
  Report Type: 
  Country: None (occurrence: None)
  Receive Date: 20070227
  Receipt Date: 20070213
  Transmission Date: 20070707
  Serious: Yes (Other)
  Sender: FDA-Public Use
  Company Number: 217419

PATIENT
  Age: 53 Year
  Sex: Female

DRUGS (2)
  1. ACTIVASE [Suspect]
     Indication: ISCHAEMIC STROKE
     Dosage: SEE IMAQGE
     Route: 042
     Dates: start: 20050316, end: 20050316
  2. . [Concomitant]

REACTIONS (2)
  - CEREBRAL HAEMORRHAGE [None]
  - PARTIAL SEIZURES [None]
